FAERS Safety Report 7005279-8 (Version None)
Quarter: 2010Q3

REPORT INFORMATION
  Report Type: 
  Country: None (occurrence: None)
  Receive Date: 20100920
  Receipt Date: 20100920
  Transmission Date: 20110219
  Serious: Yes (Other)
  Sender: FDA-Public Use
  Company Number: None

PATIENT
  Sex: Female

DRUGS (1)
  1. SIMPONI [Suspect]
     Indication: RHEUMATOID ARTHRITIS
     Dosage: 50MG MONTHLY SQ
     Route: 058
     Dates: start: 20100428, end: 20100916

REACTIONS (2)
  - HEADACHE [None]
  - PYREXIA [None]
